FAERS Safety Report 9542075 (Version 1)
Quarter: 2013Q3

REPORT INFORMATION
  Report Type: Report from Study
  Country: FR (occurrence: FR)
  Receive Date: 20130923
  Receipt Date: 20130923
  Transmission Date: 20140515
  Serious: Yes (Hospitalization, Other)
  Sender: FDA-Public Use
  Company Number: FR-ASTELLAS-2013EU007905

PATIENT
  Age: 16 Year
  Sex: Female
  Weight: 58 kg

DRUGS (12)
  1. TACROLIMUS SYSTEMIC [Suspect]
     Indication: PRODUCT USED FOR UNKNOWN INDICATION
     Dosage: UNK
     Route: 065
  2. TACROLIMUS SYSTEMIC [Suspect]
     Dosage: 6 MG, UID/QD
     Route: 065
     Dates: start: 20130606
  3. REMICADE [Suspect]
     Indication: CROHN^S DISEASE
     Dosage: UNK
     Route: 042
  4. PREDNISONE [Suspect]
     Indication: PRODUCT USED FOR UNKNOWN INDICATION
     Dosage: UNK
     Route: 065
  5. PREDNISONE [Suspect]
     Dosage: 27.5 MG/DAY, UNKNOWN/D
     Route: 065
  6. PREDNISONE [Suspect]
     Dosage: 60 MG, UID/QD
     Route: 065
     Dates: start: 20130606
  7. PREDNISONE [Suspect]
     Dosage: 55 MG, UID/QD
     Route: 065
     Dates: start: 20130703
  8. AZATHIOPRINE [Concomitant]
     Dosage: 125 MG/DAY, UNKNOWN/D
     Route: 065
  9. RIFAMPIN [Concomitant]
     Dosage: 600 MG/DAY, UNKNOWN/D
     Route: 065
  10. VALGANCICLOVIR [Concomitant]
     Dosage: 450 MG, BID
     Route: 065
  11. ESOMEPRAZOLE [Concomitant]
     Dosage: UNK
     Route: 065
  12. URSODEOXYCHOLIC ACID [Concomitant]
     Dosage: 1.5 G/DAY, UNKNOWN/D
     Route: 065

REACTIONS (2)
  - Cholangitis sclerosing [Not Recovered/Not Resolved]
  - Type 1 diabetes mellitus [Not Recovered/Not Resolved]
